FAERS Safety Report 8995177 (Version 1)
Quarter: 2012Q4

REPORT INFORMATION
  Report Type: Spontaneous
  Country: US (occurrence: None)
  Receive Date: 20121228
  Receipt Date: 20121228
  Transmission Date: 20130627
  Serious: Yes (Hospitalization)
  Sender: FDA-Public Use
  Company Number: None

PATIENT
  Age: 66 Year
  Sex: Male
  Weight: 110.2 kg

DRUGS (1)
  1. EPOETIN ALFA [Suspect]
     Indication: NEPHROGENIC ANEMIA
     Route: 058
     Dates: start: 20120719, end: 20120818

REACTIONS (1)
  - Convulsion [None]
